FAERS Safety Report 7128554-5 (Version None)
Quarter: 2010Q4

REPORT INFORMATION
  Report Type: 
  Country: None (occurrence: None)
  Receive Date: 20101130
  Receipt Date: 20101122
  Transmission Date: 20110411
  Serious: Yes (Other)
  Sender: FDA-Public Use
  Company Number: FR-BAXTER-2010BH028751

PATIENT
  Age: 89 Year
  Sex: Female

DRUGS (11)
  1. GAMMAGARD LIQUID [Suspect]
     Indication: WALDENSTROM'S MACROGLOBULINAEMIA
     Route: 042
     Dates: start: 20100727, end: 20100727
  2. GAMMAGARD LIQUID [Suspect]
     Indication: HYPOGAMMAGLOBULINAEMIA
     Route: 042
     Dates: start: 20100727, end: 20100727
  3. GAMMAGARD LIQUID [Suspect]
     Indication: SECONDARY IMMUNODEFICIENCY
     Route: 042
     Dates: start: 20100727, end: 20100727
  4. FUROSEMIDE [Suspect]
     Indication: DIURETIC THERAPY
     Route: 048
     Dates: start: 20100727, end: 20100728
  5. ROCEPHIN [Concomitant]
     Route: 042
     Dates: start: 20100726, end: 20100815
  6. ACETYLSALICYLIC ACID [Concomitant]
     Route: 048
  7. BISOPROLOL [Concomitant]
     Route: 048
  8. AMIODARONE [Concomitant]
     Route: 048
     Dates: start: 20100723
  9. MACROGOL [Concomitant]
     Route: 048
     Dates: start: 20100723
  10. OXYGEN [Concomitant]
     Dates: start: 20100101
  11. MOPRAL [Concomitant]

REACTIONS (1)
  - ANAPHYLACTIC REACTION [None]
